FAERS Safety Report 14181014 (Version 1)
Quarter: 2017Q4

REPORT INFORMATION
  Report Type: Spontaneous
  Country: US (occurrence: US)
  Receive Date: 20171110
  Receipt Date: 20171110
  Transmission Date: 20180321
  Serious: Yes (Life-Threatening)
  Sender: FDA-Public Use
  Company Number: None

PATIENT
  Age: 59 Year
  Sex: Female
  Weight: 63 kg

DRUGS (9)
  1. VITAMIN C [Concomitant]
     Active Substance: ASCORBIC ACID
  2. IRON [Concomitant]
     Active Substance: IRON
  3. POTASSIUM [Concomitant]
     Active Substance: POTASSIUM
  4. FOLIC ACID. [Concomitant]
     Active Substance: FOLIC ACID
  5. CHOLINE [Concomitant]
     Active Substance: CHOLINE
  6. PAXIL [Concomitant]
     Active Substance: PAROXETINE HYDROCHLORIDE
  7. INOSITOL [Concomitant]
     Active Substance: INOSITOL
  8. AMLODIPINE BESYLATE RX#:0006185-073 [Suspect]
     Active Substance: AMLODIPINE BESYLATE
     Indication: HYPERTENSION
     Dosage: ?          QUANTITY:30 TABLET(S);?
     Route: 048
     Dates: start: 20170912, end: 20170912
  9. CALCIUM WITH ZINC AND MAGNESIUM [Concomitant]

REACTIONS (3)
  - Seizure [None]
  - Syncope [None]
  - Atrioventricular block complete [None]

NARRATIVE: CASE EVENT DATE: 20170913
